FAERS Safety Report 9462164 (Version 1)
Quarter: 2013Q3

REPORT INFORMATION
  Report Type: Report from Study
  Country: IN (occurrence: IN)
  Receive Date: 20130816
  Receipt Date: 20130816
  Transmission Date: 20140515
  Serious: Yes (Other)
  Sender: FDA-Public Use
  Company Number: PHHY2013IN087692

PATIENT
  Age: 75 Year
  Sex: Female

DRUGS (2)
  1. ACLASTA [Suspect]
     Indication: OSTEOPOROSIS
     Dosage: 5 MG/ 100 ML PER YEAR
     Route: 042
     Dates: start: 20110906
  2. ACLASTA [Suspect]
     Dosage: 5 MG, /100 ML PER YEAR
     Route: 042
     Dates: start: 20120917

REACTIONS (3)
  - Stress fracture [Recovering/Resolving]
  - Gastric disorder [Unknown]
  - Hypertension [Unknown]
